FAERS Safety Report 9055524 (Version 1)
Quarter: 2013Q1

REPORT INFORMATION
  Report Type: Report from Study
  Country: JP (occurrence: JP)
  Receive Date: 20130206
  Receipt Date: 20130206
  Transmission Date: 20140127
  Serious: Yes (Other)
  Sender: FDA-Public Use
  Company Number: JP-GLAXOSMITHKLINE-B0859943A

PATIENT
  Age: 48 None
  Sex: Female
  Weight: 57 kg

DRUGS (8)
  1. TYKERB [Suspect]
     Indication: BREAST CANCER
     Route: 048
     Dates: start: 20120105, end: 20120523
  2. TYKERB [Suspect]
     Indication: BREAST CANCER
     Route: 048
     Dates: start: 20120524
  3. XELODA [Suspect]
     Route: 048
     Dates: start: 20120105, end: 20120328
  4. XELODA [Suspect]
     Route: 048
     Dates: start: 20120329, end: 20120523
  5. XELODA [Suspect]
     Route: 048
     Dates: start: 20120524
  6. PYDOXAL [Concomitant]
     Indication: PROPHYLAXIS
     Route: 048
     Dates: start: 20120105
  7. MIYA-BM [Concomitant]
     Indication: PROPHYLAXIS AGAINST DIARRHOEA
     Route: 048
     Dates: start: 20120105
  8. UREPEARL [Concomitant]
     Indication: PROPHYLAXIS
     Route: 061
     Dates: start: 20120105

REACTIONS (2)
  - Cardiac failure [Not Recovered/Not Resolved]
  - Neutropenia [Recovering/Resolving]
